FAERS Safety Report 8327960-0 (Version None)
Quarter: 2012Q2

REPORT INFORMATION
  Report Type: 
  Country: None (occurrence: None)
  Receive Date: 20120430
  Receipt Date: 20120424
  Transmission Date: 20120825
  Serious: Yes (Other)
  Sender: FDA-Public Use
  Company Number: GER/UKI/12/0024046

PATIENT
  Age: 37 Year
  Sex: Female
  Weight: 85 kg

DRUGS (5)
  1. CLOBETASOL PROPIONATE [Concomitant]
  2. FLUOXETINE [Suspect]
     Indication: PRODUCT USED FOR UNKNOWN INDICATION
     Dosage: 20 MG, 1 IN 1 D, 40 MG
     Dates: start: 20110101, end: 20111130
  3. FLUOXETINE [Suspect]
     Indication: PRODUCT USED FOR UNKNOWN INDICATION
     Dosage: 20 MG, 1 IN 1 D, 40 MG
     Dates: start: 20110908, end: 20110101
  4. CLOBETASONE BUTYRATE (CLOBETASONE BUTYRATE) [Concomitant]
  5. CITALOPRAM HYDROBROMIDE [Suspect]
     Indication: PRODUCT USED FOR UNKNOWN INDICATION
     Dates: start: 20120130

REACTIONS (3)
  - AMENORRHOEA [None]
  - HYPERPROLACTINAEMIA [None]
  - GALACTORRHOEA [None]
